FAERS Safety Report 7121306-1 (Version None)
Quarter: 2010Q4

REPORT INFORMATION
  Report Type: 
  Country: None (occurrence: None)
  Receive Date: 20101122
  Receipt Date: 20101122
  Transmission Date: 20110411
  Serious: Yes (Hospitalization)
  Sender: FDA-Public Use
  Company Number: None

PATIENT
  Age: 48 Year
  Sex: Female
  Weight: 86.637 kg

DRUGS (3)
  1. LISINOPRIL AND HYDROCHLOROTHIAZIDE [Suspect]
     Indication: HYPERTENSION
     Dosage: 1 TAB TWICE A DAY PO
     Route: 048
     Dates: start: 20090401, end: 20100731
  2. . [Concomitant]
  3. . [Concomitant]

REACTIONS (11)
  - ARTHRALGIA [None]
  - DEPRESSION [None]
  - FALL [None]
  - FLUID RETENTION [None]
  - FOOT FRACTURE [None]
  - HYPOAESTHESIA FACIAL [None]
  - HYPOAESTHESIA ORAL [None]
  - NEPHROLITHIASIS [None]
  - SWELLING [None]
  - URINE ODOUR ABNORMAL [None]
  - WEIGHT INCREASED [None]
